FAERS Safety Report 26145701 (Version 1)
Quarter: 2025Q4

REPORT INFORMATION
  Report Type: Spontaneous
  Country: EU (occurrence: EU)
  Receive Date: 20251211
  Receipt Date: 20251211
  Transmission Date: 20260117
  Serious: Yes (Other)
  Sender: MERCK SHARP & DOHME LLC
  Company Number: None

PATIENT
  Age: 57 Year
  Sex: Male

DRUGS (2)
  1. PEMBROLIZUMAB [Suspect]
     Active Substance: PEMBROLIZUMAB
     Indication: Gallbladder cancer metastatic
     Dates: start: 20251117
  2. ENFORTUMAB VEDOTIN [Suspect]
     Active Substance: ENFORTUMAB VEDOTIN
     Indication: Gallbladder cancer metastatic
     Dosage: COURSE 2
     Dates: start: 20251117

REACTIONS (5)
  - Pain of skin [Unknown]
  - Erythema [Unknown]
  - Skin burning sensation [Unknown]
  - Toxic epidermal necrolysis [Unknown]
  - Blister [Unknown]

NARRATIVE: CASE EVENT DATE: 20251101
